FAERS Safety Report 5571264-6 (Version None)
Quarter: 2007Q4

REPORT INFORMATION
  Report Type: 
  Country: None (occurrence: None)
  Receive Date: 20071221
  Receipt Date: 20070405
  Transmission Date: 20080405
  Serious: No
  Sender: FDA-Public Use
  Company Number: A0646083A

PATIENT
  Age: 41 Year
  Sex: Female

DRUGS (3)
  1. FLONASE [Suspect]
     Dosage: 1SPR PER DAY
     Route: 045
     Dates: start: 20070322, end: 20070404
  2. ALLEGRA D 24 HOUR [Concomitant]
  3. IBUPROFEN [Concomitant]

REACTIONS (1)
  - NASAL DISCOMFORT [None]
